FAERS Safety Report 11089391 (Version 1)
Quarter: 2015Q2

REPORT INFORMATION
  Report Type: Spontaneous
  Country: US (occurrence: None)
  Receive Date: 20150501
  Receipt Date: 20150501
  Transmission Date: 20150821
  Serious: Yes (Other)
  Sender: FDA-Public Use
  Company Number: US-H14001-15-00647

PATIENT
  Sex: Female

DRUGS (2)
  1. DURAMORPH [Suspect]
     Active Substance: MORPHINE SULFATE
     Indication: PRODUCT USED FOR UNKNOWN INDICATION
     Dosage: - STOPPED, (UNKNOWN), INTRATHECAL
     Route: 037
  2. DILAUDID [Suspect]
     Active Substance: HYDROMORPHONE HYDROCHLORIDE
     Indication: PRODUCT USED FOR UNKNOWN INDICATION
     Dosage: - STOPPED, (UNKNOWN), INTRATHECAL
     Route: 037
     Dates: start: 2012

REACTIONS (4)
  - Medical device complication [None]
  - Device breakage [None]
  - Non-alcoholic steatohepatitis [None]
  - Pain [None]
